FAERS Safety Report 6613371-2 (Version None)
Quarter: 2010Q1

REPORT INFORMATION
  Report Type: 
  Country: None (occurrence: None)
  Receive Date: 20100304
  Receipt Date: 20100226
  Transmission Date: 20100710
  Serious: Yes (Hospitalization)
  Sender: FDA-Public Use
  Company Number: IT-WYE-G05313210

PATIENT
  Sex: Male

DRUGS (6)
  1. EFFEXOR [Suspect]
     Indication: DEPRESSION
     Route: 048
     Dates: start: 20090215, end: 20090315
  2. SEREUPIN [Concomitant]
     Indication: DEPRESSION
     Dosage: 1 UNIT
     Route: 048
  3. METFORMIN HYDROCHLORIDE [Concomitant]
     Indication: DIABETES MELLITUS
     Dosage: 3 UNITS
     Route: 048
  4. TAVOR [Concomitant]
     Dosage: 2 TABLETS
     Route: 048
  5. AUGMENTIN [Interacting]
     Indication: SINUSITIS
     Route: 048
     Dates: start: 20090312, end: 20090314
  6. ACEDIUR [Concomitant]
     Indication: HYPERTENSION
     Dosage: 5 UNITS
     Route: 048

REACTIONS (5)
  - CONFUSIONAL STATE [None]
  - DRUG INTERACTION [None]
  - HEADACHE [None]
  - HYPERTENSIVE CRISIS [None]
  - VERTIGO [None]
